FAERS Safety Report 23205568 (Version 1)
Quarter: 2023Q4

REPORT INFORMATION
  Report Type: Report from Study
  Country: US (occurrence: US)
  Receive Date: 20231120
  Receipt Date: 20231120
  Transmission Date: 20240110
  Serious: Yes (Other)
  Sender: FDA-Public Use
  Company Number: US-ABBVIE-5494367

PATIENT
  Sex: Female

DRUGS (2)
  1. IMBRUVICA [Suspect]
     Active Substance: IBRUTINIB
     Indication: Waldenstrom^s macroglobulinaemia
     Dosage: 1 TABLET?STRENGTH: 420 MILLIGRAM
     Route: 048
     Dates: start: 2018
  2. IMBRUVICA [Suspect]
     Active Substance: IBRUTINIB
     Indication: Waldenstrom^s macroglobulinaemia
     Dosage: 1 TABLET?STRENGTH: 420 MILLIGRAM
     Route: 048

REACTIONS (1)
  - Pulmonary hypertension [Unknown]

NARRATIVE: CASE EVENT DATE: 20230101
